FAERS Safety Report 7031607-3 (Version None)
Quarter: 2010Q4

REPORT INFORMATION
  Report Type: 
  Country: None (occurrence: None)
  Receive Date: 20101006
  Receipt Date: 20101006
  Transmission Date: 20110411
  Serious: Yes (Life-Threatening, Disabling, Other)
  Sender: FDA-Public Use
  Company Number: None

PATIENT
  Sex: Male
  Weight: 79.3795 kg

DRUGS (1)
  1. CHLORPROMAZINE [Suspect]
     Indication: HICCUPS
     Dosage: 1 TABLET 3 TIMES DAILY PO
     Route: 048
     Dates: start: 20100326, end: 20100328

REACTIONS (7)
  - CHOLESTASIS [None]
  - DEPRESSION [None]
  - FEAR [None]
  - FRUSTRATION [None]
  - HEPATITIS [None]
  - INSOMNIA [None]
  - STRESS [None]
